FAERS Safety Report 5608396-X (Version None)
Quarter: 2008Q1

REPORT INFORMATION
  Report Type: 
  Country: None (occurrence: None)
  Receive Date: 20080125
  Receipt Date: 20080115
  Transmission Date: 20080703
  Serious: Yes (Other)
  Sender: FDA-Public Use
  Company Number: 2007-04169

PATIENT
  Age: 61 Year
  Sex: Male
  Weight: 68 kg

DRUGS (4)
  1. VELCADE [Suspect]
     Indication: MULTIPLE MYELOMA
     Dosage: 1.3 MG/M2; INTRAVENOUS, 2.29 MG, INTRAVENOUS
     Route: 042
     Dates: start: 20070723, end: 20070802
  2. VELCADE [Suspect]
     Indication: MULTIPLE MYELOMA
     Dosage: 1.3 MG/M2; INTRAVENOUS, 2.29 MG, INTRAVENOUS
     Route: 042
     Dates: start: 20070820, end: 20071015
  3. ZOMETA [Concomitant]
  4. PLATELETS [Concomitant]

REACTIONS (6)
  - ANAEMIA [None]
  - CONSTIPATION [None]
  - HYPOAESTHESIA [None]
  - NEUROPATHY PERIPHERAL [None]
  - PAIN [None]
  - PLATELET COUNT DECREASED [None]
